FAERS Safety Report 10265417 (Version 2)
Quarter: 2014Q2

REPORT INFORMATION
  Report Type: Report from Study
  Country: FR (occurrence: FR)
  Receive Date: 20140627
  Receipt Date: 20140627
  Transmission Date: 20141212
  Serious: Yes (Other)
  Sender: FDA-Public Use
  Company Number: FR-BAYER-2013-083905

PATIENT
  Age: 48 Year
  Sex: Female

DRUGS (7)
  1. REGORAFENIB [Suspect]
     Indication: COLORECTAL CANCER METASTATIC
     Dosage: 160 MG, UNK
     Dates: start: 20130625, end: 20130705
  2. TRAMADOL [Concomitant]
     Indication: PAIN
     Dosage: BID
     Dates: start: 201303
  3. PARACETAMOL [Concomitant]
     Indication: PAIN
     Dosage: UNK
     Dates: start: 201004, end: 20130701
  4. TETRAZEPAM [Concomitant]
     Indication: PAIN
     Dosage: QD
     Dates: start: 201305
  5. ESOMEPRAZOLE [Concomitant]
     Dosage: DAILY DOSE 40 MG
  6. FENTANYL [Concomitant]
     Indication: PAIN
  7. LOPERAMIDE [Concomitant]
     Dosage: IRR

REACTIONS (10)
  - Jaundice [None]
  - Transaminases increased [None]
  - Pruritus [None]
  - Palmar-plantar erythrodysaesthesia syndrome [Recovering/Resolving]
  - Colon cancer [None]
  - Fatigue [None]
  - Decreased appetite [None]
  - Cholangitis [None]
  - Ulcer [Recovered/Resolved]
  - Blood bilirubin increased [Recovered/Resolved]
